FAERS Safety Report 12736092 (Version 5)
Quarter: 2016Q4

REPORT INFORMATION
  Report Type: Report from Study
  Country: US (occurrence: US)
  Receive Date: 20160912
  Receipt Date: 20161213
  Transmission Date: 20170207
  Serious: Yes (Hospitalization, Other)
  Sender: FDA-Public Use
  Company Number: US-MALLINCKRODT-T201604152

PATIENT
  Age: 70 Year
  Sex: Female

DRUGS (2)
  1. REPOSITORY CORTICOTROPIN INJECTION [Suspect]
     Active Substance: CORTICOTROPIN
     Indication: PROTEINURIA
     Dosage: 20 UNITS / 0.25 ML; TWICE WEEKLY (TUES/THUR)
     Route: 058
     Dates: start: 20161011, end: 20161027
  2. REPOSITORY CORTICOTROPIN INJECTION [Suspect]
     Active Substance: CORTICOTROPIN
     Indication: NEPHROTIC SYNDROME
     Dosage: 20 UNITS TWICE WKLY (TUES/THURS)
     Route: 058
     Dates: start: 20160705, end: 20160801

REACTIONS (17)
  - Wound infection [Not Recovered/Not Resolved]
  - Oedema peripheral [Unknown]
  - Anaemia [Not Recovered/Not Resolved]
  - Fluid retention [Unknown]
  - Pleural effusion [Recovering/Resolving]
  - Dyspnoea [Not Recovered/Not Resolved]
  - Malaise [Not Recovered/Not Resolved]
  - Hyperkalaemia [Not Recovered/Not Resolved]
  - Arteriosclerosis coronary artery [Not Recovered/Not Resolved]
  - Cellulitis [Recovering/Resolving]
  - Cardiomegaly [Unknown]
  - Blood thyroid stimulating hormone decreased [Not Recovered/Not Resolved]
  - Hypertension [Not Recovered/Not Resolved]
  - Dysstasia [Not Recovered/Not Resolved]
  - Decreased appetite [Unknown]
  - Suffocation feeling [Unknown]
  - Weight increased [Not Recovered/Not Resolved]

NARRATIVE: CASE EVENT DATE: 2016
